FAERS Safety Report 4410715-7 (Version None)
Quarter: 2004Q3

REPORT INFORMATION
  Report Type: 
  Country: None (occurrence: None)
  Receive Date: 20040728
  Receipt Date: 20040728
  Transmission Date: 20050211
  Serious: No
  Sender: FDA-Public Use
  Company Number: None

PATIENT
  Age: 73 Year
  Sex: Male
  Weight: 63.9572 kg

DRUGS (2)
  1. ARICEPT [Suspect]
     Indication: AMNESIA
     Dosage: 1 TABLET A DAY BY MOUTH
     Route: 048
  2. ARICEPT [Suspect]

REACTIONS (2)
  - ABNORMAL BEHAVIOUR [None]
  - SCREAMING [None]
